FAERS Safety Report 19428401 (Version 2)
Quarter: 2021Q2

REPORT INFORMATION
  Report Type: Spontaneous
  Country: GB (occurrence: GB)
  Receive Date: 20210617
  Receipt Date: 20210624
  Transmission Date: 20210717
  Serious: Yes (Other)
  Sender: FDA-Public Use
  Company Number: GB-TAKEDA-2021TUS037275

PATIENT
  Age: 46 Year
  Sex: Female
  Weight: 69 kg

DRUGS (2)
  1. ENTYVIO [Suspect]
     Active Substance: VEDOLIZUMAB
     Indication: ILL-DEFINED DISORDER
  2. ENTYVIO [Suspect]
     Active Substance: VEDOLIZUMAB
     Indication: COLITIS ULCERATIVE
     Dosage: UNK
     Route: 065

REACTIONS (6)
  - Stillbirth [Not Recovered/Not Resolved]
  - Diarrhoea [Unknown]
  - Parvovirus B19 test positive [Unknown]
  - Pregnancy [Recovered/Resolved]
  - Vomiting [Unknown]
  - Placental disorder [Unknown]

NARRATIVE: CASE EVENT DATE: 202002
